FAERS Safety Report 10684056 (Version 1)
Quarter: 2014Q4

REPORT INFORMATION
  Report Type: Other
  Country: IT (occurrence: IT)
  Receive Date: 20141230
  Receipt Date: 20141230
  Transmission Date: 20150529
  Serious: Yes (Hospitalization)
  Sender: FDA-Public Use
  Company Number: IT-MYLANLABS-2014M1015540

PATIENT

DRUGS (1)
  1. LEVETIRACETAM MYLAN 100 MG/ML, CONCENTRATE FOR SOLUTION FOR INFUSION [Suspect]
     Active Substance: LEVETIRACETAM
     Indication: PRODUCT USED FOR UNKNOWN INDICATION
     Dosage: 500 MG DAILY
     Route: 042
     Dates: start: 20141127, end: 20141127

REACTIONS (2)
  - Rash generalised [Recovered/Resolved]
  - Hypersensitivity [Recovered/Resolved]

NARRATIVE: CASE EVENT DATE: 20141127
